FAERS Safety Report 10061912 (Version 4)
Quarter: 2014Q2

REPORT INFORMATION
  Report Type: Spontaneous
  Country: GB (occurrence: GB)
  Receive Date: 20140407
  Receipt Date: 20140610
  Transmission Date: 20141212
  Serious: Yes (Other)
  Sender: FDA-Public Use
  Company Number: GB-BEH-2013036498

PATIENT
  Sex: Female
  Weight: 74 kg

DRUGS (3)
  1. HIZENTRA [Suspect]
     Indication: IMMUNODEFICIENCY COMMON VARIABLE
     Dosage: INFUSION OF 40 ML IN THE RIGHT THIGH
     Route: 058
     Dates: start: 20130519
  2. SALBUTAMOL INHALER [Concomitant]
     Indication: ASTHMA
  3. FLIXOTIDE [Concomitant]
     Indication: ASTHMA

REACTIONS (7)
  - Infusion site ulcer [Recovered/Resolved]
  - Skin ulcer [Recovered/Resolved]
  - Infusion site scab [Recovered/Resolved]
  - Infusion site erythema [Recovered/Resolved]
  - Infusion site vesicles [Recovered/Resolved]
  - Product package associated injury [Unknown]
  - Procedural complication [Unknown]
